FAERS Safety Report 17859839 (Version 1)
Quarter: 2020Q2

REPORT INFORMATION
  Report Type: Spontaneous
  Country: US (occurrence: US)
  Receive Date: 20200604
  Receipt Date: 20200604
  Transmission Date: 20200714
  Serious: No
  Sender: FDA-Public Use
  Company Number: US-TEVA-2020-US-1245458

PATIENT

DRUGS (1)
  1. BUPRENORPHINE TEVA [Suspect]
     Active Substance: BUPRENORPHINE
     Indication: PAIN
     Dosage: 15 MCG / HR
     Route: 065

REACTIONS (4)
  - Product adhesion issue [Unknown]
  - Application site irritation [Unknown]
  - Pruritus [Unknown]
  - Product substitution issue [Unknown]
